FAERS Safety Report 13958098 (Version 1)
Quarter: 2017Q3

REPORT INFORMATION
  Report Type: Spontaneous
  Country: GB (occurrence: GB)
  Receive Date: 20170912
  Receipt Date: 20170912
  Transmission Date: 20171128
  Serious: Yes (Hospitalization)
  Sender: FDA-Public Use
  Company Number: PHFR2017GB007367

PATIENT
  Age: 66 Year
  Sex: Female
  Weight: 112 kg

DRUGS (8)
  1. PERINDOPRIL [Suspect]
     Active Substance: PERINDOPRIL
     Indication: HYPERTENSION
     Dosage: 40 MG, QD, IN THE MORNING
     Route: 048
  2. LEVETIRACETAM. [Suspect]
     Active Substance: LEVETIRACETAM
     Indication: EPILEPSY
     Dosage: 125 G, BID
     Route: 048
  3. OMEPRAZOLE. [Suspect]
     Active Substance: OMEPRAZOLE
     Indication: PRODUCT USED FOR UNKNOWN INDICATION
     Dosage: 40 MG, UNK
     Route: 048
  4. DEXAMETHASONE. [Suspect]
     Active Substance: DEXAMETHASONE
     Indication: PRODUCT USED FOR UNKNOWN INDICATION
     Dosage: 4 MG, BID
     Route: 048
     Dates: start: 20170721
  5. INDAPAMIDE. [Suspect]
     Active Substance: INDAPAMIDE
     Indication: HYPERTENSION
     Dosage: 1.5 MG, QD, MORNING
     Route: 048
  6. OCTENISAN (HYDROXYETHYL CELLULOSE\OCTENIDINE\PROPYLENE GLYCOL) [Suspect]
     Active Substance: HYDROXYETHYL CELLULOSE\OCTENIDINE\PROPYLENE GLYCOL
     Indication: PRODUCT USED FOR UNKNOWN INDICATION
     Route: 061
  7. LEVOTHYROXINE. [Suspect]
     Active Substance: LEVOTHYROXINE
     Indication: PRODUCT USED FOR UNKNOWN INDICATION
     Dosage: 125 UG, UNK
     Route: 048
  8. HYDROCORTISONE. [Concomitant]
     Active Substance: HYDROCORTISONE
     Indication: ADRENAL INSUFFICIENCY
     Dosage: 5 MG, BID
     Route: 065

REACTIONS (7)
  - Product packaging confusion [Unknown]
  - Rash [Unknown]
  - Stevens-Johnson syndrome [Not Recovered/Not Resolved]
  - Incorrect dose administered [Unknown]
  - Hypotension [Unknown]
  - Dizziness [Unknown]
  - Blister [Unknown]

NARRATIVE: CASE EVENT DATE: 20170816
